FAERS Safety Report 8224226-4 (Version None)
Quarter: 2012Q1

REPORT INFORMATION
  Report Type: 
  Country: None (occurrence: None)
  Receive Date: 20120321
  Receipt Date: 20120312
  Transmission Date: 20120608
  Serious: Yes (Hospitalization)
  Sender: FDA-Public Use
  Company Number: BR-NOVOPROD-346472

PATIENT
  Age: 29 Year
  Sex: Female
  Weight: 117 kg

DRUGS (5)
  1. LIRAGLUTIDE FLEXPEN [Suspect]
     Dosage: 1.8 MG, QD
     Route: 058
     Dates: start: 20110725
  2. LIRAGLUTIDE FLEXPEN [Suspect]
     Dosage: 3.0 MG, QD
     Route: 058
     Dates: start: 20110808
  3. LIRAGLUTIDE FLEXPEN [Suspect]
     Dosage: 2.4 MG, QD
     Route: 058
     Dates: start: 20110803
  4. LIRAGLUTIDE FLEXPEN [Suspect]
     Indication: OBESITY
     Dosage: 0.6 MG, UNK
     Route: 058
     Dates: start: 20110711
  5. LIRAGLUTIDE FLEXPEN [Suspect]
     Dosage: 1.2 MG, QD
     Route: 058
     Dates: start: 20110718

REACTIONS (1)
  - CHOLELITHIASIS [None]
